FAERS Safety Report 7831395-4 (Version None)
Quarter: 2011Q4

REPORT INFORMATION
  Report Type: 
  Country: None (occurrence: None)
  Receive Date: 20111021
  Receipt Date: 20111020
  Transmission Date: 20120403
  Serious: Yes (Life-Threatening, Hospitalization)
  Sender: FDA-Public Use
  Company Number: AU-B.I. PHARMACEUTICALS,INC./RIDGEFIELD-2011-AU-01540AU

PATIENT
  Sex: Male

DRUGS (3)
  1. FUROSEMIDE [Concomitant]
  2. PERINDOPRIL ERBUMINE [Concomitant]
  3. PRADAXA [Suspect]
     Indication: ATRIAL FIBRILLATION
     Dosage: 220 MG
     Dates: start: 20110802, end: 20110902

REACTIONS (1)
  - ISCHAEMIC STROKE [None]
